FAERS Safety Report 9580486 (Version 1)
Quarter: 2013Q3

REPORT INFORMATION
  Report Type: Spontaneous
  Country: US (occurrence: None)
  Receive Date: 20130916
  Receipt Date: 20130916
  Transmission Date: 20140515
  Serious: Yes (Other)
  Sender: FDA-Public Use
  Company Number: JPI-P-026493

PATIENT
  Age: 45 Year
  Sex: Female
  Weight: 141.52 kg

DRUGS (6)
  1. XYREM [Suspect]
     Indication: INSOMNIA
     Dosage: 4.5 (2.525 GM, 2 IN 1 D)
     Route: 048
     Dates: start: 20051024
  2. XYREM [Suspect]
     Indication: SLEEP DISORDER
     Dosage: 4.5 (2.525 GM, 2 IN 1 D)
     Route: 048
     Dates: start: 20051024
  3. LEVOTHYROXINE [Concomitant]
  4. CALCIUM [Concomitant]
  5. MAGNESIUM [Concomitant]
  6. MULTIVITAMIN [Concomitant]

REACTIONS (11)
  - Sleep apnoea syndrome [None]
  - Periorbital haematoma [None]
  - Weight increased [None]
  - Poor quality sleep [None]
  - Fatigue [None]
  - Somnambulism [None]
  - Fall [None]
  - Contusion [None]
  - Laceration [None]
  - Face injury [None]
  - Weight decreased [None]
